FAERS Safety Report 7987906-1 (Version None)
Quarter: 2011Q4

REPORT INFORMATION
  Report Type: 
  Country: None (occurrence: None)
  Receive Date: 20111216
  Receipt Date: 20111207
  Transmission Date: 20120403
  Serious: Yes (Other)
  Sender: FDA-Public Use
  Company Number: US-SP-2011-12019

PATIENT
  Sex: Female

DRUGS (1)
  1. THERACYS [Suspect]
     Indication: ACCIDENTAL EXPOSURE
     Route: 065

REACTIONS (3)
  - TUBERCULOSIS [None]
  - MYCOBACTERIUM TUBERCULOSIS COMPLEX TEST POSITIVE [None]
  - ACCIDENTAL EXPOSURE [None]
